FAERS Safety Report 14519015 (Version 2)
Quarter: 2018Q1

REPORT INFORMATION
  Report Type: Spontaneous
  Country: BA (occurrence: BA)
  Receive Date: 20180212
  Receipt Date: 20180221
  Transmission Date: 20180509
  Serious: Yes (Hospitalization)
  Sender: FDA-Public Use
  Company Number: BA-009507513-1802BIH003966

PATIENT
  Age: 2 Year
  Sex: Male

DRUGS (3)
  1. FLIXOTIDE [Concomitant]
     Active Substance: FLUTICASONE PROPIONATE
     Dosage: UNK
     Dates: start: 201706
  2. SINGULAIR MINI 4 MG ORALNE GRANULE [Suspect]
     Active Substance: MONTELUKAST SODIUM
     Dosage: UNKNOWN
     Route: 048
     Dates: start: 20160922, end: 201801
  3. VENTOLIN [Concomitant]
     Active Substance: ALBUTEROL SULFATE
     Dosage: UNK
     Dates: start: 201609

REACTIONS (4)
  - Epistaxis [Recovered/Resolved]
  - Diarrhoea [Unknown]
  - Therapy non-responder [Unknown]
  - Obstructive airways disorder [Unknown]

NARRATIVE: CASE EVENT DATE: 201701
